FAERS Safety Report 8812994 (Version 15)
Quarter: 2014Q2

REPORT INFORMATION
  Report Type: Report from Study
  Country: US (occurrence: US)
  Receive Date: 20120927
  Receipt Date: 20140428
  Transmission Date: 20141212
  Serious: Yes (Hospitalization)
  Sender: FDA-Public Use
  Company Number: US-ROCHE-1103657

PATIENT
  Sex: Female
  Weight: 116.68 kg

DRUGS (37)
  1. OMALIZUMAB [Suspect]
     Indication: ASTHMA
     Dosage: MOST RECENT DOSE: 20/SEP/2013
     Route: 058
  2. OMALIZUMAB [Suspect]
     Route: 065
     Dates: start: 20130315
  3. OMALIZUMAB [Suspect]
     Route: 065
     Dates: start: 20130403
  4. OMALIZUMAB [Suspect]
     Route: 065
     Dates: start: 20130417
  5. OMALIZUMAB [Suspect]
     Route: 065
     Dates: start: 20130503
  6. OMALIZUMAB [Suspect]
     Route: 065
     Dates: start: 20130515
  7. OMALIZUMAB [Suspect]
     Route: 065
     Dates: start: 20130605
  8. OMALIZUMAB [Suspect]
     Route: 065
     Dates: start: 20130621
  9. OMALIZUMAB [Suspect]
     Route: 065
     Dates: start: 20130703
  10. OMALIZUMAB [Suspect]
     Route: 065
     Dates: start: 20130717
  11. OMALIZUMAB [Suspect]
     Route: 065
     Dates: start: 20130807
  12. OMALIZUMAB [Suspect]
     Route: 065
     Dates: start: 20130821
  13. OMALIZUMAB [Suspect]
     Route: 065
     Dates: start: 20130906
  14. OMALIZUMAB [Suspect]
     Route: 065
     Dates: start: 20130920
  15. OMALIZUMAB [Suspect]
     Route: 058
     Dates: start: 20131002
  16. OMALIZUMAB [Suspect]
     Route: 058
     Dates: start: 20131023
  17. OMALIZUMAB [Suspect]
     Route: 058
     Dates: start: 20131111
  18. OMALIZUMAB [Suspect]
     Route: 058
     Dates: start: 20131122
  19. OMALIZUMAB [Suspect]
     Route: 058
     Dates: start: 20131206
  20. OMALIZUMAB [Suspect]
     Route: 058
     Dates: start: 20131218
  21. OMALIZUMAB [Suspect]
     Route: 058
     Dates: start: 20140103
  22. OMALIZUMAB [Suspect]
     Route: 058
     Dates: start: 20140115
  23. OMALIZUMAB [Suspect]
     Route: 058
     Dates: start: 20140129
  24. OMALIZUMAB [Suspect]
     Route: 058
     Dates: start: 20140212
  25. OMALIZUMAB [Suspect]
     Route: 058
     Dates: start: 20140305
  26. OMALIZUMAB [Suspect]
     Route: 058
     Dates: start: 20140321
  27. ADVAIR [Concomitant]
     Indication: ASTHMA
     Dosage: INHALATION
     Route: 001
  28. ZYRTEC [Concomitant]
     Indication: HYPERSENSITIVITY
     Route: 048
  29. PROTONIX (UNITED STATES) [Concomitant]
     Indication: GASTROOESOPHAGEAL REFLUX DISEASE
     Route: 048
  30. SINGULAIR [Concomitant]
     Indication: ASTHMA
     Route: 048
  31. SINGULAIR [Concomitant]
     Indication: HYPERSENSITIVITY
  32. AUGMENTIN [Concomitant]
     Indication: SINUSITIS
  33. VENTOLIN [Concomitant]
     Indication: ASTHMA
     Dosage: INHALATION
     Route: 065
  34. ALBUTEROL [Concomitant]
     Indication: ASTHMA
     Dosage: INHALATION
     Route: 065
  35. DIFLORASONE [Concomitant]
     Indication: ECZEMA
     Route: 061
  36. ALLEGRA [Concomitant]
     Indication: HYPERSENSITIVITY
  37. ZOLOFT [Concomitant]
     Indication: DEPRESSION
     Route: 065

REACTIONS (4)
  - Premature baby [Unknown]
  - Premature separation of placenta [Recovered/Resolved]
  - Uterine leiomyoma [Recovered/Resolved]
  - Exposure during pregnancy [Unknown]
